FAERS Safety Report 10367713 (Version 1)
Quarter: 2014Q3

REPORT INFORMATION
  Report Type: Spontaneous
  Country: BR (occurrence: BR)
  Receive Date: 20140807
  Receipt Date: 20140807
  Transmission Date: 20150326
  Serious: Yes (Death)
  Sender: FDA-Public Use
  Company Number: BR-PFIZER INC-2014219869

PATIENT
  Age: 87 Year
  Sex: Male
  Weight: 71 kg

DRUGS (5)
  1. SIMVASTATIN. [Concomitant]
     Active Substance: SIMVASTATIN
     Indication: BLOOD CHOLESTEROL ABNORMAL
     Dosage: 1 TABLET, DAILY
     Dates: start: 1994, end: 201312
  2. DIAMICRON [Concomitant]
     Active Substance: GLICLAZIDE
     Indication: DIABETES MELLITUS
     Dosage: 1 TABLET, DAILY
     Dates: start: 2008, end: 201312
  3. LYRICA [Suspect]
     Active Substance: PREGABALIN
     Indication: NEURALGIA
     Dosage: 1 CAPSULE OF 75 MG PLUS 1 CAPSULE OF 150 MG (225 MG), DAILY
     Route: 048
     Dates: start: 2010
  4. PROPANOLOL [Concomitant]
     Active Substance: PROPRANOLOL HYDROCHLORIDE
     Indication: CARDIAC DISORDER
     Dosage: 3 TABLETS, DAILY
     Dates: end: 201312
  5. LANTUS [Concomitant]
     Active Substance: INSULIN GLARGINE
     Indication: DIABETES MELLITUS
     Dosage: 35 UNITS
     Dates: start: 2010, end: 201312

REACTIONS (3)
  - Infection [Fatal]
  - Blister [Fatal]
  - Pain [Unknown]
